FAERS Safety Report 6526094-5 (Version None)
Quarter: 2009Q4

REPORT INFORMATION
  Report Type: 
  Country: None (occurrence: None)
  Receive Date: 20091222
  Receipt Date: 20091221
  Transmission Date: 20100525
  Serious: Yes (Hospitalization)
  Sender: FDA-Public Use
  Company Number: SP02702

PATIENT
  Age: 77 Year
  Sex: Male

DRUGS (7)
  1. VISICOL [Suspect]
     Indication: BOWEL PREPARATION
     Dosage: 50 GM, ORAL
     Route: 048
     Dates: start: 20091201, end: 20091201
  2. AMLODIPINE [Concomitant]
  3. LEVOTHYROXINE SODIUM [Concomitant]
  4. ATORVASTATIN [Concomitant]
  5. VALSARTAN [Concomitant]
  6. BICALUTAMIDE [Concomitant]
  7. TAMSULOSIN HCL [Concomitant]

REACTIONS (3)
  - DYSPNOEA [None]
  - OEDEMA [None]
  - RENAL FAILURE ACUTE [None]
